FAERS Safety Report 6734753-4 (Version None)
Quarter: 2010Q2

REPORT INFORMATION
  Report Type: 
  Country: None (occurrence: None)
  Receive Date: 20100519
  Receipt Date: 20100519
  Transmission Date: 20101027
  Serious: No
  Sender: FDA-Public Use
  Company Number: None

PATIENT
  Sex: Female
  Weight: 63.5036 kg

DRUGS (1)
  1. ROZEREM [Suspect]
     Indication: INSOMNIA
     Dosage: .8MG 1 TABLET PER NIGHT
     Dates: start: 20100428

REACTIONS (3)
  - HEADACHE [None]
  - INSOMNIA [None]
  - PRODUCT QUALITY ISSUE [None]
